FAERS Safety Report 10474145 (Version 1)
Quarter: 2014Q3

REPORT INFORMATION
  Report Type: Spontaneous
  Country: US (occurrence: US)
  Receive Date: 20140924
  Receipt Date: 20140924
  Transmission Date: 20150326
  Serious: No
  Sender: FDA-Public Use
  Company Number: US-ASTRAZENECA-2013SE78507

PATIENT
  Age: 58 Month
  Sex: Female
  Weight: 79.4 kg

DRUGS (5)
  1. FLECAINIDE [Concomitant]
     Active Substance: FLECAINIDE
     Indication: ARRHYTHMIA
     Route: 048
     Dates: start: 2007
  2. SIMVASTATIN. [Concomitant]
     Active Substance: SIMVASTATIN
     Indication: HYPERLIPIDAEMIA
     Route: 048
     Dates: start: 2007
  3. TOPROL XL [Suspect]
     Active Substance: METOPROLOL SUCCINATE
     Indication: ATRIAL FIBRILLATION
     Dosage: GENERIC
     Route: 048
     Dates: start: 2010
  4. TOPROL XL [Suspect]
     Active Substance: METOPROLOL SUCCINATE
     Indication: ATRIAL FIBRILLATION
     Route: 048
     Dates: start: 2010
  5. LISINOPRIL. [Suspect]
     Active Substance: LISINOPRIL
     Indication: HYPERTENSION
     Route: 048
     Dates: start: 2007

REACTIONS (6)
  - Blood glucose increased [Recovering/Resolving]
  - Glucose tolerance impaired [Recovered/Resolved]
  - Chest discomfort [Recovered/Resolved]
  - Blood triglycerides increased [Recovering/Resolving]
  - Palpitations [Not Recovered/Not Resolved]
  - Heart rate increased [Not Recovered/Not Resolved]

NARRATIVE: CASE EVENT DATE: 2013
